FAERS Safety Report 4806134-1 (Version None)
Quarter: 2005Q4

REPORT INFORMATION
  Report Type: 
  Country: None (occurrence: None)
  Receive Date: 20051019
  Receipt Date: 20051019
  Transmission Date: 20060501
  Serious: Yes (Hospitalization)
  Sender: FDA-Public Use
  Company Number: None

PATIENT
  Age: 78 Year
  Sex: Male
  Weight: 80.7403 kg

DRUGS (1)
  1. LISINOPRIL [Suspect]
     Indication: HYPERTENSION
     Dosage: 20MG DAILY PO
     Route: 048
     Dates: start: 20050623, end: 20050922

REACTIONS (4)
  - BLOOD PRESSURE INCREASED [None]
  - PAIN [None]
  - PANCREATITIS ACUTE [None]
  - VOMITING [None]
